FAERS Safety Report 5893045-6 (Version None)
Quarter: 2008Q3

REPORT INFORMATION
  Report Type: 
  Country: None (occurrence: None)
  Receive Date: 20080923
  Receipt Date: 20080211
  Transmission Date: 20090109
  Serious: No
  Sender: FDA-Public Use
  Company Number: US-ASTRAZENECA-2006UW27649

PATIENT
  Age: 21569 Day
  Sex: Female
  Weight: 122.3 kg

DRUGS (4)
  1. SEROQUEL [Suspect]
     Indication: DEPRESSION
     Dosage: 300 TO 600 MG
     Route: 048
     Dates: start: 20040201, end: 20050201
  2. CLOZARIL [Concomitant]
  3. GEODON [Concomitant]
  4. PAXIL [Concomitant]

REACTIONS (3)
  - BLOOD CHOLESTEROL INCREASED [None]
  - DIABETES MELLITUS [None]
  - OBESITY [None]
